FAERS Safety Report 6733852-0 (Version None)
Quarter: 2010Q2

REPORT INFORMATION
  Report Type: 
  Country: None (occurrence: None)
  Receive Date: 20100520
  Receipt Date: 20100512
  Transmission Date: 20101027
  Serious: Yes (Death, Hospitalization)
  Sender: FDA-Public Use
  Company Number: US-AMGEN-QUU411926

PATIENT
  Sex: Female

DRUGS (2)
  1. ARANESP [Suspect]
     Indication: DIALYSIS
     Dates: start: 20081001
  2. UNSPECIFIED MEDICATION [Concomitant]

REACTIONS (2)
  - MENTAL STATUS CHANGES [None]
  - RENAL FAILURE [None]
